FAERS Safety Report 5482518-6 (Version None)
Quarter: 2007Q4

REPORT INFORMATION
  Report Type: 
  Country: None (occurrence: None)
  Receive Date: 20071011
  Receipt Date: 20070615
  Transmission Date: 20080405
  Serious: No
  Sender: FDA-Public Use
  Company Number: A0656936A

PATIENT
  Age: 67 Year

DRUGS (10)
  1. TYKERB [Suspect]
     Indication: BREAST CANCER
     Dosage: 5TAB PER DAY
     Route: 048
     Dates: start: 20070609
  2. XELODA [Concomitant]
  3. CYMBALTA [Concomitant]
  4. METHYLPREDNISOLONE [Concomitant]
  5. LISINOPRIL AND HYDROCHLOROTHIAZIDE [Concomitant]
  6. AZATHIOPRINE [Concomitant]
  7. TRAMADOL HCL [Concomitant]
  8. ACTOS [Concomitant]
  9. FUROSEMIDE [Concomitant]
  10. MULTI-VITAMIN [Concomitant]

REACTIONS (2)
  - CHILLS [None]
  - DIARRHOEA [None]
